FAERS Safety Report 9341796 (Version 2)
Quarter: 2013Q3

REPORT INFORMATION
  Report Type: Spontaneous
  Country: US (occurrence: None)
  Receive Date: 20130606
  Receipt Date: 20130711
  Transmission Date: 20140515
  Serious: Yes (Hospitalization)
  Sender: FDA-Public Use
  Company Number: ACO_36194_2013

PATIENT
  Age: 42 Year
  Sex: Female
  Weight: 68 kg

DRUGS (10)
  1. AMPYRA [Suspect]
     Indication: GAIT DISTURBANCE
     Route: 048
     Dates: start: 20130502, end: 201305
  2. AMPYRA [Suspect]
     Indication: MULTIPLE SCLEROSIS
     Route: 048
     Dates: start: 20130502, end: 201305
  3. GLUCOCORTICOSTEROIDS [Suspect]
     Indication: MULTIPLE SCLEROSIS RELAPSE
     Dates: start: 201305
  4. INSULIN (INSULIN) [Concomitant]
  5. AVONEX (INTERFERON BETA-1A) [Concomitant]
  6. VITAMIN D3 (COLECALCIFEROL) [Concomitant]
  7. MULTIVITAMIN (VITAMINS NOS) ONGOING POLY-IRON (POLYSACCHARIDE-IRON COMPLEX) [Concomitant]
  8. POLY-IRON (POLYSACCHARIDE-IRON COMPLEX) [Concomitant]
  9. ANTIHYPERTENSIVES [Concomitant]
  10. ALL OTHER THERAPEUTIC PRODUCTS [Concomitant]

REACTIONS (7)
  - Multiple sclerosis relapse [None]
  - Blood glucose increased [None]
  - Insomnia [None]
  - Blood glucose decreased [None]
  - Muscle spasms [None]
  - Muscle spasms [None]
  - Muscle spasms [None]
